FAERS Safety Report 10548150 (Version 1)
Quarter: 2014Q4

REPORT INFORMATION
  Report Type: Spontaneous
  Country: BR (occurrence: BR)
  Receive Date: 20141028
  Receipt Date: 20141028
  Transmission Date: 20150529
  Serious: Yes (Hospitalization)
  Sender: FDA-Public Use
  Company Number: BR-PFIZER INC-2014294485

PATIENT
  Age: 72 Year
  Sex: Female

DRUGS (2)
  1. CELEBRA [Suspect]
     Active Substance: CELECOXIB
     Dosage: 1 CAPSULE OF 200 MG, EVERY 12 HOURS
     Route: 048
     Dates: start: 2009
  2. DAFLON [Concomitant]
     Active Substance: DIOSMIN\HESPERIDIN
     Indication: VARICOSE VEIN
     Dosage: 1 TABLET EVERY 12 HOURS
     Dates: start: 2010

REACTIONS (4)
  - Intervertebral disc protrusion [Unknown]
  - Thrombosis [Unknown]
  - Disease recurrence [Unknown]
  - Drug ineffective [Unknown]

NARRATIVE: CASE EVENT DATE: 201407
